FAERS Safety Report 5275042-7 (Version None)
Quarter: 2007Q1

REPORT INFORMATION
  Report Type: 
  Country: None (occurrence: None)
  Receive Date: 20070326
  Receipt Date: 20070314
  Transmission Date: 20070707
  Serious: Yes (Hospitalization)
  Sender: FDA-Public Use
  Company Number: US-JNJFOC-20070303363

PATIENT
  Sex: Male

DRUGS (7)
  1. REMICADE [Suspect]
     Route: 042
  2. REMICADE [Suspect]
     Indication: CROHN'S DISEASE
     Dosage: 2 INFUSIONS ON UNKNOWN DATES
     Route: 042
  3. VICODIN [Concomitant]
  4. OXYCONTIN [Concomitant]
  5. FOSAMAX [Concomitant]
  6. VIRACTIN [Concomitant]
  7. MULTI-VITAMINS [Concomitant]

REACTIONS (2)
  - FALL [None]
  - FOOT FRACTURE [None]
